FAERS Safety Report 16966392 (Version 1)
Quarter: 2019Q4

REPORT INFORMATION
  Report Type: Spontaneous
  Country: DE (occurrence: DE)
  Receive Date: 20191028
  Receipt Date: 20191028
  Transmission Date: 20200122
  Serious: Yes (Other)
  Sender: FDA-Public Use
  Company Number: DE-MYLANLABS-2019M1100982

PATIENT
  Age: 37 Year
  Sex: Male

DRUGS (1)
  1. LEVOFLOXACIN. [Suspect]
     Active Substance: LEVOFLOXACIN
     Indication: PRODUCT USED FOR UNKNOWN INDICATION
     Dosage: 1 DOSAGE FORM, QD
     Route: 048
     Dates: start: 20150719, end: 20150720

REACTIONS (9)
  - Tendon discomfort [Recovered/Resolved]
  - Dizziness [Recovered/Resolved]
  - Fear of death [Recovered/Resolved]
  - Pain in extremity [Recovered/Resolved]
  - Panic reaction [Recovered/Resolved]
  - Gait inability [Recovered/Resolved]
  - Impaired work ability [Recovered/Resolved]
  - Tendon pain [Recovered/Resolved]
  - Palpitations [Recovered/Resolved]

NARRATIVE: CASE EVENT DATE: 20150719
